FAERS Safety Report 7461491-5 (Version None)
Quarter: 2011Q2

REPORT INFORMATION
  Report Type: 
  Country: None (occurrence: None)
  Receive Date: 20110506
  Receipt Date: 20110504
  Transmission Date: 20111010
  Serious: No
  Sender: FDA-Public Use
  Company Number: US-PFIZER INC-2011096383

PATIENT
  Sex: Female
  Weight: 69.388 kg

DRUGS (5)
  1. ADDERALL 10 [Concomitant]
     Indication: MENTAL DISORDER
     Dosage: 20 MG, UNK
     Dates: start: 19870101
  2. AMBIEN [Concomitant]
     Indication: MENTAL DISORDER
     Dosage: 10 MG, UNK
     Dates: start: 19870101
  3. PRISTIQ [Suspect]
     Indication: DEPRESSION
     Dosage: 50 MG, 1X/DAY
     Route: 048
     Dates: start: 20110203, end: 20110315
  4. XANAX [Concomitant]
     Indication: MENTAL DISORDER
     Dosage: 0.5 MG, UNK
     Dates: start: 19870101
  5. PRISTIQ [Suspect]
     Dosage: 100 MG, 1X/DAY
     Route: 048
     Dates: start: 20110316

REACTIONS (2)
  - MEDICATION RESIDUE [None]
  - DRUG EFFECT DECREASED [None]
